FAERS Safety Report 16193165 (Version 1)
Quarter: 2019Q2

REPORT INFORMATION
  Report Type: Report from Study
  Country: US (occurrence: US)
  Receive Date: 20190413
  Receipt Date: 20190413
  Transmission Date: 20190711
  Serious: Yes (Other)
  Sender: FDA-Public Use
  Company Number: US-TEVA-2019-US-1035675

PATIENT
  Age: 59 Year
  Sex: Male

DRUGS (1)
  1. COPAXONE [Suspect]
     Active Substance: GLATIRAMER ACETATE
     Indication: MULTIPLE SCLEROSIS
     Route: 058
     Dates: start: 20180308

REACTIONS (8)
  - Cough [Unknown]
  - Dyspnoea [Unknown]
  - Erythema [Unknown]
  - Chest pain [Unknown]
  - Loss of consciousness [Unknown]
  - Immediate post-injection reaction [Unknown]
  - Speech disorder [Unknown]
  - Back pain [Unknown]

NARRATIVE: CASE EVENT DATE: 20190401
